FAERS Safety Report 6742255-4 (Version None)
Quarter: 2010Q2

REPORT INFORMATION
  Report Type: 
  Country: None (occurrence: None)
  Receive Date: 20100526
  Receipt Date: 20100514
  Transmission Date: 20101027
  Serious: Yes (Hospitalization, Other)
  Sender: FDA-Public Use
  Company Number: US-BAYER-200943401NA

PATIENT
  Age: 17 Year
  Sex: Female
  Weight: 52 kg

DRUGS (15)
  1. YASMIN [Suspect]
     Indication: DRUG USE FOR UNKNOWN INDICATION
     Route: 048
  2. YAZ [Suspect]
     Indication: ACNE
     Route: 048
     Dates: start: 20070318, end: 20070502
  3. IBUPROFEN [Concomitant]
     Route: 065
  4. BUTCHERS BROOM [Concomitant]
     Indication: POSTURAL ORTHOSTATIC TACHYCARDIA SYNDROME
     Route: 065
  5. LICORICE ROOT [Concomitant]
     Indication: POSTURAL ORTHOSTATIC TACHYCARDIA SYNDROME
     Route: 065
  6. MIDODRINE HYDROCHLORIDE [Concomitant]
     Indication: POSTURAL ORTHOSTATIC TACHYCARDIA SYNDROME
     Route: 065
  7. FLORINEF [Concomitant]
     Indication: POSTURAL ORTHOSTATIC TACHYCARDIA SYNDROME
     Route: 065
  8. VITAMINS [Concomitant]
     Indication: VITAMIN SUPPLEMENTATION
     Route: 065
  9. RANITIDINE [Concomitant]
     Route: 065
     Dates: start: 20070501, end: 20070501
  10. FLUDROCORTISONE [Concomitant]
     Route: 065
     Dates: start: 20070501, end: 20070501
  11. MIDODRINE HYDROCHLORIDE [Concomitant]
     Route: 065
  12. ONDANSETRON [Concomitant]
     Route: 065
     Dates: start: 20070501, end: 20070501
  13. MORPHINE [Concomitant]
     Route: 065
     Dates: start: 20070501, end: 20070501
  14. KETOROLAC TROMETHAMINE [Concomitant]
     Route: 065
     Dates: start: 20070501, end: 20070501
  15. TRAMADOL HCL [Concomitant]
     Route: 065
     Dates: start: 20070501, end: 20070501

REACTIONS (2)
  - DEEP VEIN THROMBOSIS [None]
  - PULMONARY EMBOLISM [None]
